FAERS Safety Report 14003371 (Version 8)
Quarter: 2019Q2

REPORT INFORMATION
  Report Type: Report from Study
  Country: US (occurrence: US)
  Receive Date: 20170922
  Receipt Date: 20190611
  Transmission Date: 20190711
  Serious: Yes (Hospitalization)
  Sender: FDA-Public Use
  Company Number: US-ACTELION-A-US2017-158245

PATIENT
  Age: 50 Year
  Sex: Female
  Weight: 134.24 kg

DRUGS (4)
  1. AMLODIPINE [Concomitant]
     Active Substance: AMLODIPINE BESYLATE
  2. OPSUMIT [Suspect]
     Active Substance: MACITENTAN
     Indication: PULMONARY ARTERIAL HYPERTENSION
     Dosage: 10 MG, QD
     Route: 048
  3. ADEMPAS [Concomitant]
     Active Substance: RIOCIGUAT
     Dosage: 2.0 MG, UNK
     Route: 048
  4. ELIQUIS [Concomitant]
     Active Substance: APIXABAN

REACTIONS (17)
  - Sinusitis [Unknown]
  - Weight increased [Unknown]
  - Dyspnoea exertional [Unknown]
  - Ankle fracture [Unknown]
  - Chest pain [Unknown]
  - Loss of consciousness [Unknown]
  - Hospitalisation [Unknown]
  - Fluid overload [Unknown]
  - Oxygen saturation decreased [Unknown]
  - Fatigue [Unknown]
  - Costochondritis [Unknown]
  - Dizziness [Unknown]
  - Dyspnoea [Unknown]
  - Oedema peripheral [Unknown]
  - Fluid retention [Unknown]
  - Carbon dioxide increased [Unknown]
  - Oedema [Unknown]

NARRATIVE: CASE EVENT DATE: 20171222
